FAERS Safety Report 6572022-6 (Version None)
Quarter: 2010Q1

REPORT INFORMATION
  Report Type: 
  Country: None (occurrence: None)
  Receive Date: 20100205
  Receipt Date: 20100128
  Transmission Date: 20100710
  Serious: Yes (Hospitalization)
  Sender: FDA-Public Use
  Company Number: FR-PFIZER INC-2010011543

PATIENT
  Age: 76 Year
  Sex: Male

DRUGS (11)
  1. AMLOR [Suspect]
     Indication: HYPERTENSION
     Dosage: 10 MG, DAILY
     Route: 048
  2. TAHOR [Suspect]
     Indication: HYPERCHOLESTEROLAEMIA
     Dosage: 10 MG, DAILY
     Route: 048
  3. PREVISCAN [Suspect]
     Dosage: UNK
     Route: 048
     Dates: start: 20050101
  4. PREVISCAN [Suspect]
     Dosage: UNK
  5. CORDARONE [Suspect]
     Dosage: 200 MG, DAILY
     Route: 048
     Dates: start: 20050101
  6. PARIET [Suspect]
     Dosage: 10 MG, DAILY
     Route: 048
  7. FLUOXETINE [Suspect]
     Indication: DEPRESSION
     Dosage: 20 MG, DAILY
     Route: 048
  8. ALFACALCIDOL [Concomitant]
     Indication: RENAL FAILURE CHRONIC
     Dosage: 0.25 UG, UNK
     Route: 048
  9. AERIUS [Concomitant]
     Indication: HYPERSENSITIVITY
     Dosage: 5 MG, UNK
     Route: 048
  10. IMOVANE [Concomitant]
     Dosage: 7.5 MG, UNK
     Route: 048
  11. TARDYFERON-FOL [Concomitant]
     Indication: ANAEMIA
     Dosage: 1 DF, DAILY
     Route: 048

REACTIONS (2)
  - CARDIOACTIVE DRUG LEVEL ABOVE THERAPEUTIC [None]
  - HAEMATOMA [None]
